FAERS Safety Report 5273949-8 (Version None)
Quarter: 2007Q1

REPORT INFORMATION
  Report Type: 
  Country: None (occurrence: None)
  Receive Date: 20070323
  Receipt Date: 20070313
  Transmission Date: 20070707
  Serious: No
  Sender: FDA-Public Use
  Company Number: IT-ELI_LILLY_AND_COMPANY-IT200703003623

PATIENT
  Age: 62 Year

DRUGS (3)
  1. CIALIS [Suspect]
     Dosage: 20 MG, AS NEEDED
     Route: 048
     Dates: start: 20060101
  2. COTAREG [Concomitant]
  3. URODIE [Concomitant]

REACTIONS (1)
  - VISION BLURRED [None]
